FAERS Safety Report 15883491 (Version 2)
Quarter: 2019Q4

REPORT INFORMATION
  Report Type: Spontaneous
  Country: NO (occurrence: NO)
  Receive Date: 20190129
  Receipt Date: 20191226
  Transmission Date: 20200122
  Serious: Yes (Disabling, Other)
  Sender: FDA-Public Use
  Company Number: NO-APOTEX-2019AP007121

PATIENT
  Age: 17 Year
  Sex: Male

DRUGS (9)
  1. CETIRIZIN [Concomitant]
     Active Substance: CETIRIZINE HYDROCHLORIDE
     Indication: HYPERSENSITIVITY
     Dosage: 10 MG, UNK
     Route: 065
  2. VOLTAREN [Concomitant]
     Active Substance: DICLOFENAC SODIUM
     Indication: AIDS RELATED COMPLEX
     Dosage: UNK
     Route: 065
     Dates: start: 200909
  3. DALACIN                            /00166002/ [Concomitant]
     Active Substance: CLINDAMYCIN HYDROCHLORIDE
     Indication: BACTERIAL INFECTION
     Dosage: 150 MG, UNK
     Route: 065
     Dates: start: 201111
  4. FLUOXETINE [Concomitant]
     Active Substance: FLUOXETINE HYDROCHLORIDE
     Indication: PRODUCT USED FOR UNKNOWN INDICATION
     Dosage: UNK
     Route: 065
  5. SEROXAT [Suspect]
     Active Substance: PAROXETINE HYDROCHLORIDE
     Indication: DEPRESSION
     Dosage: 20 MG, UNK
     Route: 065
     Dates: start: 20081103
  6. SEROXAT [Suspect]
     Active Substance: PAROXETINE HYDROCHLORIDE
     Dosage: UNK
     Route: 065
     Dates: start: 201702
  7. SEROXAT [Suspect]
     Active Substance: PAROXETINE HYDROCHLORIDE
     Indication: PREMATURE EJACULATION
     Dosage: UNK
     Route: 065
     Dates: start: 20070818
  8. FEXOFENADINE [Concomitant]
     Active Substance: FEXOFENADINE HYDROCHLORIDE
     Indication: HYPERSENSITIVITY
     Dosage: 120 MG, UNK
     Route: 065
  9. SEROXAT [Suspect]
     Active Substance: PAROXETINE HYDROCHLORIDE
     Indication: ERECTILE DYSFUNCTION
     Dosage: 20 MG, UNK
     Route: 065
     Dates: start: 20071103

REACTIONS (22)
  - Depression [Not Recovered/Not Resolved]
  - Off label use [Unknown]
  - Pneumonia [Unknown]
  - Anogenital warts [Unknown]
  - Product use in unapproved indication [Unknown]
  - Pyrexia [Unknown]
  - Cough [Unknown]
  - Irritability [Unknown]
  - Asthenia [Unknown]
  - Night sweats [Not Recovered/Not Resolved]
  - Blood testosterone decreased [Unknown]
  - Nasopharyngitis [Unknown]
  - Anger [Not Recovered/Not Resolved]
  - Hypersomnia [Unknown]
  - Mental disorder [Unknown]
  - Nightmare [Not Recovered/Not Resolved]
  - Bacterial infection [Unknown]
  - Sleep disorder [Not Recovered/Not Resolved]
  - Anxiety [Not Recovered/Not Resolved]
  - Secretion discharge [Unknown]
  - Loss of personal independence in daily activities [Unknown]
  - Drug effective for unapproved indication [Unknown]

NARRATIVE: CASE EVENT DATE: 20070622
